FAERS Safety Report 6850362-0 (Version None)
Quarter: 2010Q3

REPORT INFORMATION
  Report Type: 
  Country: None (occurrence: None)
  Receive Date: 20100716
  Receipt Date: 20071012
  Transmission Date: 20110219
  Serious: No
  Sender: FDA-Public Use
  Company Number: US-PFIZER INC-2007087431

PATIENT
  Sex: Female
  Weight: 61.7 kg

DRUGS (8)
  1. CHANTIX [Suspect]
     Indication: SMOKING CESSATION THERAPY
     Dates: start: 20071001
  2. NEURONTIN [Concomitant]
  3. METOPROLOL [Concomitant]
  4. ATACAND [Concomitant]
  5. WARFARIN SODIUM [Concomitant]
  6. ZETIA [Concomitant]
  7. FUROSEMIDE [Concomitant]
  8. LIPITOR [Concomitant]

REACTIONS (3)
  - ABDOMINAL DISCOMFORT [None]
  - INSOMNIA [None]
  - NAUSEA [None]
